FAERS Safety Report 20490146 (Version 1)
Quarter: 2022Q1

REPORT INFORMATION
  Report Type: Spontaneous
  Country: US (occurrence: None)
  Receive Date: 20220218
  Receipt Date: 20220218
  Transmission Date: 20220424
  Serious: Yes (Other)
  Sender: FDA-Public Use
  Company Number: 2022A075941

PATIENT
  Age: 46 Year
  Sex: Female

DRUGS (2)
  1. NEXIUM 24HR [Suspect]
     Active Substance: ESOMEPRAZOLE MAGNESIUM
     Indication: Reflux laryngitis
     Dosage: UNK
     Route: 048
     Dates: start: 20220214
  2. PEPSIN [Concomitant]
     Active Substance: PEPSIN
     Indication: Reflux laryngitis
     Dosage: 1 DF

REACTIONS (3)
  - Foreign body in throat [Recovered/Resolved]
  - Product use in unapproved indication [Unknown]
  - Circumstance or information capable of leading to medication error [Unknown]

NARRATIVE: CASE EVENT DATE: 20220214
